FAERS Safety Report 9016099 (Version 2)
Quarter: 2013Q2

REPORT INFORMATION
  Report Type: Spontaneous
  Country: SI (occurrence: SI)
  Receive Date: 20130116
  Receipt Date: 20130510
  Transmission Date: 20140414
  Serious: Yes (Hospitalization)
  Sender: FDA-Public Use
  Company Number: PHHY2013SI002553

PATIENT
  Age: 77 Year
  Sex: Female

DRUGS (8)
  1. METHOTREXATE [Suspect]
     Indication: RHEUMATOID ARTHRITIS
     Dosage: 5 - 10 MG ONCE A WEEK
     Dates: start: 1998, end: 2002
  2. METHOTREXATE [Suspect]
     Dosage: 7.5 MG, QW
  3. ENALAPRIL [Concomitant]
  4. BISOPROLOL [Concomitant]
  5. CALCIUM CARBONATE [Concomitant]
  6. ACETYLSALICYLIC ACID [Concomitant]
  7. PANTOPRAZOLE [Concomitant]
  8. METHYLPREDNISOLONE [Concomitant]

REACTIONS (9)
  - Platelet count increased [Unknown]
  - Haematoma [Recovered/Resolved]
  - Pancytopenia [Recovered/Resolved]
  - Epistaxis [Recovered/Resolved]
  - Pyrexia [Recovered/Resolved]
  - Anaemia megaloblastic [Recovered/Resolved]
  - Macrocytosis [Unknown]
  - Hepatic enzyme increased [Unknown]
  - Mouth haemorrhage [Unknown]
